FAERS Safety Report 5904610-1 (Version None)
Quarter: 2008Q3

REPORT INFORMATION
  Report Type: 
  Country: None (occurrence: None)
  Receive Date: 20080909
  Receipt Date: 20071106
  Transmission Date: 20090109
  Serious: Yes (Death, Hospitalization)
  Sender: FDA-Public Use
  Company Number: 163-20785-07101096

PATIENT
  Age: 84 Year
  Sex: Male

DRUGS (8)
  1. THALOMID [Suspect]
     Indication: MULTIPLE MYELOMA
     Dosage: 200 MG, 1 IN 1 D, ORAL
     Route: 048
     Dates: start: 20070807, end: 20070920
  2. LASIX [Concomitant]
  3. FLOMAX [Concomitant]
  4. NEURONTIN [Concomitant]
  5. VITAMIN B6 (CYANOCOBALAMIN) [Concomitant]
  6. HUMULIN 70/30 [Concomitant]
  7. METOPROLOL TARTRATE [Concomitant]
  8. NIFEDIAC (NIFEDIPINE) [Concomitant]

REACTIONS (5)
  - DEATH [None]
  - FEBRILE NEUTROPENIA [None]
  - FUNGAL INFECTION [None]
  - RENAL FAILURE [None]
  - SEPSIS [None]
